FAERS Safety Report 14887432 (Version 2)
Quarter: 2018Q2

REPORT INFORMATION
  Report Type: Spontaneous
  Country: FR (occurrence: FR)
  Receive Date: 20180513
  Receipt Date: 20180614
  Transmission Date: 20180711
  Serious: Yes (Death, Hospitalization)
  Sender: FDA-Public Use
  Company Number: FR-ROCHE-2119201

PATIENT
  Age: 61 Year
  Sex: Female
  Weight: 40 kg

DRUGS (4)
  1. PREDNISONE. [Suspect]
     Active Substance: PREDNISONE
     Indication: LIVER TRANSPLANT
     Route: 065
  2. SOLU-MEDROL [Suspect]
     Active Substance: METHYLPREDNISOLONE SODIUM SUCCINATE
     Indication: PROPHYLAXIS AGAINST TRANSPLANT REJECTION
     Route: 042
     Dates: start: 20130529, end: 20130630
  3. PROGRAF [Suspect]
     Active Substance: TACROLIMUS\TACROLIMUS ANHYDROUS
     Indication: LIVER TRANSPLANT
     Route: 065
     Dates: start: 20130529, end: 20130630
  4. MYCOPHENOLATE MOFETIL. [Suspect]
     Active Substance: MYCOPHENOLATE MOFETIL
     Indication: LIVER TRANSPLANT
     Route: 065
     Dates: start: 20130529, end: 20130614

REACTIONS (16)
  - Aspergillus infection [Fatal]
  - Respiratory failure [Fatal]
  - Metabolic disorder [Fatal]
  - Coagulopathy [Fatal]
  - Multiple organ dysfunction syndrome [Fatal]
  - Respiratory acidosis [Fatal]
  - Pulmonary oedema [Fatal]
  - Cytomegalovirus infection [Fatal]
  - Hypercapnia [Fatal]
  - Renal failure [Fatal]
  - Hypoxia [Fatal]
  - Lung disorder [Fatal]
  - Systemic inflammatory response syndrome [Fatal]
  - Circulatory collapse [Fatal]
  - Toxoplasmosis [Fatal]
  - Acute respiratory distress syndrome [Fatal]

NARRATIVE: CASE EVENT DATE: 201306
